FAERS Safety Report 20450678 (Version 1)
Quarter: 2022Q1

REPORT INFORMATION
  Report Type: Spontaneous
  Country: US (occurrence: None)
  Receive Date: 20220209
  Receipt Date: 20220209
  Transmission Date: 20220423
  Serious: No
  Sender: FDA-Public Use
  Company Number: None

PATIENT
  Age: 3 Year
  Sex: Male
  Weight: 18.45 kg

DRUGS (2)
  1. MONTELUKAST SODIUM [Suspect]
     Active Substance: MONTELUKAST SODIUM
     Indication: Cough
     Dates: start: 20211220, end: 20220205
  2. MONTELUKAST SODIUM [Suspect]
     Active Substance: MONTELUKAST SODIUM
     Indication: Rhinitis allergic

REACTIONS (5)
  - Insomnia [None]
  - Tearfulness [None]
  - Restlessness [None]
  - Agitation [None]
  - Withdrawal syndrome [None]

NARRATIVE: CASE EVENT DATE: 20220207
